FAERS Safety Report 21819702 (Version 1)
Quarter: 2023Q1

REPORT INFORMATION
  Report Type: Spontaneous
  Country: DK (occurrence: DK)
  Receive Date: 20230104
  Receipt Date: 20230104
  Transmission Date: 20230417
  Serious: Yes (Hospitalization, Disabling, Other)
  Sender: FDA-Public Use
  Company Number: None

PATIENT
  Age: 46 Year
  Sex: Male

DRUGS (7)
  1. ETOPOSIDE [Suspect]
     Active Substance: ETOPOSIDE
     Indication: Testicular cancer metastatic
     Dosage: 264 MILLIGRAM, QD?START DATE 11-JAN-2021
     Dates: end: 20210116
  2. ETOPOSIDE [Suspect]
     Active Substance: ETOPOSIDE
     Dosage: 264 MILLIGRAM, QD
     Dates: start: 20210201, end: 20210216
  3. ETOPOSIDE [Suspect]
     Active Substance: ETOPOSIDE
     Dosage: 264 MILLIGRAM, QD
     Dates: start: 20210225, end: 20210228
  4. ETOPOSIDE [Suspect]
     Active Substance: ETOPOSIDE
     Dosage: 264 MG
     Dates: start: 20210201, end: 20210216
  5. ETOPOSIDE [Suspect]
     Active Substance: ETOPOSIDE
     Dosage: 264 MG
     Dates: start: 20210225, end: 20210228
  6. BLEOMYCIN SULFATE [Suspect]
     Active Substance: BLEOMYCIN SULFATE
     Indication: Testicular cancer metastatic
     Dosage: 30000 IU?START DATE 11-JAN-2021
     Dates: end: 20210228
  7. CISPLATIN [Suspect]
     Active Substance: CISPLATIN
     Indication: Testicular cancer metastatic
     Dosage: 53 MILLIGRAM, QD?START DATE 11-JAN-2021
     Dates: end: 20210228

REACTIONS (15)
  - Muscle spasms [Recovered/Resolved]
  - Pain in extremity [Recovered/Resolved]
  - Arterial thrombosis [Not Recovered/Not Resolved]
  - Hypoaesthesia [Recovered/Resolved]
  - Livedo reticularis [Recovered/Resolved]
  - Aortic thrombosis [None]
  - Pain in extremity [Recovered/Resolved]
  - Sensory disturbance [Recovered/Resolved]
  - Thrombosis [Recovered/Resolved]
  - Peripheral swelling [Recovered/Resolved]
  - Skin discolouration [Recovered/Resolved]
  - Musculoskeletal stiffness [Recovered/Resolved]
  - Peripheral vascular disorder [Recovered/Resolved]
  - Oedema peripheral [Recovered/Resolved]
  - Cyanosis [Recovered/Resolved]

NARRATIVE: CASE EVENT DATE: 20210101
